FAERS Safety Report 12406063 (Version 1)
Quarter: 2016Q2

REPORT INFORMATION
  Report Type: Spontaneous
  Country: US (occurrence: None)
  Receive Date: 20160525
  Receipt Date: 20160525
  Transmission Date: 20160815
  Serious: Yes (Life-Threatening, Hospitalization)
  Sender: FDA-Public Use
  Company Number: None

PATIENT
  Age: 65 Year
  Sex: Female
  Weight: 79.38 kg

DRUGS (9)
  1. ORENCIA [Suspect]
     Active Substance: ABATACEPT
     Indication: RHEUMATOID ARTHRITIS
     Dosage: 2 INJECTION (S) ONCE A WEEK GIVEN INTO/UNDER THE SKIN
     Dates: start: 20151215, end: 20151222
  2. TURMERIC [Concomitant]
     Active Substance: TURMERIC
  3. IRON [Concomitant]
     Active Substance: IRON
  4. FLAXSEED [Concomitant]
     Active Substance: FLAX SEED
  5. FOLIC ACID. [Concomitant]
     Active Substance: FOLIC ACID
  6. CALTRATE [Concomitant]
     Active Substance: CALCIUM CARBONATE
  7. STOOL SOFTENERS [Concomitant]
     Active Substance: UNSPECIFIED INGREDIENT
  8. FISH OIL [Concomitant]
     Active Substance: FISH OIL
  9. GINGER. [Concomitant]
     Active Substance: GINGER

REACTIONS (4)
  - Pyrexia [None]
  - Somnolence [None]
  - Cough [None]
  - Loss of consciousness [None]

NARRATIVE: CASE EVENT DATE: 20151228
